FAERS Safety Report 5256044-3 (Version None)
Quarter: 2007Q1

REPORT INFORMATION
  Report Type: 
  Country: None (occurrence: None)
  Receive Date: 20070306
  Receipt Date: 20070221
  Transmission Date: 20070707
  Serious: Yes (Other)
  Sender: FDA-Public Use
  Company Number: PHEH2007US02285

PATIENT
  Age: 73 Year
  Sex: Female

DRUGS (1)
  1. LESCOL [Suspect]
     Indication: HYPERCHOLESTEROLAEMIA
     Dosage: 40 MG, QD
     Route: 048
     Dates: start: 20030101, end: 20070101

REACTIONS (3)
  - ATRIAL FIBRILLATION [None]
  - MUSCLE SPASMS [None]
  - MUSCLE TWITCHING [None]
